FAERS Safety Report 7824846-2 (Version None)
Quarter: 2011Q4

REPORT INFORMATION
  Report Type: 
  Country: None (occurrence: None)
  Receive Date: 20111019
  Receipt Date: 20110214
  Transmission Date: 20120403
  Serious: No
  Sender: FDA-Public Use
  Company Number: US-BRISTOL-MYERS SQUIBB COMPANY-15547961

PATIENT
  Age: 79 Year
  Sex: Male
  Weight: 93 kg

DRUGS (7)
  1. PRAVASTATIN [Concomitant]
  2. AVODART [Concomitant]
  3. NORVASC [Concomitant]
     Indication: HYPERTENSION
  4. ACTOS [Concomitant]
  5. METFORMIN HCL [Concomitant]
  6. AVALIDE [Suspect]
     Indication: HYPERTENSION
     Dosage: 1 DF = 300/25MG
  7. PLAVIX [Concomitant]

REACTIONS (2)
  - DIARRHOEA [None]
  - MUSCLE SPASMS [None]
